FAERS Safety Report 15225221 (Version 1)
Quarter: 2018Q3

REPORT INFORMATION
  Report Type: Spontaneous
  Country: RU (occurrence: RU)
  Receive Date: 20180801
  Receipt Date: 20180801
  Transmission Date: 20181010
  Serious: Yes (Other)
  Sender: FDA-Public Use
  Company Number: RU-ROCHE-2162912

PATIENT
  Age: 80 Year
  Sex: Female

DRUGS (3)
  1. MABTHERA [Suspect]
     Active Substance: RITUXIMAB
     Indication: NON-HODGKIN^S LYMPHOMA
     Route: 065
  2. RIBOMUSTIN [Concomitant]
     Active Substance: BENDAMUSTINE HYDROCHLORIDE
     Indication: NON-HODGKIN^S LYMPHOMA
  3. LEUKERAN [Concomitant]
     Active Substance: CHLORAMBUCIL
     Indication: NON-HODGKIN^S LYMPHOMA

REACTIONS (4)
  - Recurrent cancer [Unknown]
  - Neutropenia [Unknown]
  - Off label use [Unknown]
  - Intentional product use issue [Unknown]
